FAERS Safety Report 12804122 (Version 3)
Quarter: 2017Q2

REPORT INFORMATION
  Report Type: Spontaneous
  Country: US (occurrence: US)
  Receive Date: 20161003
  Receipt Date: 20170504
  Transmission Date: 20170830
  Serious: Yes (Death)
  Sender: FDA-Public Use
  Company Number: US-ROCHE-1835240

PATIENT
  Age: 68 Year
  Sex: Male
  Weight: 68.1 kg

DRUGS (1)
  1. TECENTRIQ [Suspect]
     Active Substance: ATEZOLIZUMAB
     Indication: BLADDER TRANSITIONAL CELL CARCINOMA
     Route: 041
     Dates: start: 20160912, end: 20160912

REACTIONS (2)
  - Malaise [Fatal]
  - Bladder cancer [Fatal]

NARRATIVE: CASE EVENT DATE: 20160918
